FAERS Safety Report 12189079 (Version 3)
Quarter: 2016Q2

REPORT INFORMATION
  Report Type: Spontaneous
  Country: JP (occurrence: JP)
  Receive Date: 20160317
  Receipt Date: 20160526
  Transmission Date: 20160815
  Serious: Yes (Hospitalization)
  Sender: FDA-Public Use
  Company Number: JP-009507513-1603JPN007044

PATIENT
  Age: 65 Year
  Sex: Male
  Weight: 59 kg

DRUGS (9)
  1. PREDNISOLONE. [Concomitant]
     Active Substance: PREDNISOLONE
     Dosage: DAILY DOSAGE UNKNOWN
     Route: 048
  2. LANSOPRAZOLE. [Concomitant]
     Active Substance: LANSOPRAZOLE
     Dosage: DAILY DOSAGE UNKNOWN
     Route: 048
  3. ATELEC [Concomitant]
     Active Substance: CILNIDIPINE
     Dosage: DAILY DOSAGE UNKNOWN
     Route: 048
  4. EQUA [Concomitant]
     Active Substance: VILDAGLIPTIN
     Dosage: DAILY DOSAGE UNKNOWN
     Route: 048
  5. PREDONINE [Concomitant]
     Active Substance: PREDNISOLONE\PREDNISOLONE ACETATE\PREDNISOLONE SODIUM SUCCINATE
     Dosage: DAILY DOSAGE UNKNOWN
     Route: 048
  6. CALONAL [Concomitant]
     Active Substance: ACETAMINOPHEN
     Dosage: DAILY DOSAGE UNKNOWN
     Route: 048
  7. MICARDIS [Concomitant]
     Active Substance: TELMISARTAN
     Dosage: DAILY DOSAGE UNKNOWN
     Route: 048
  8. RIFAMPIN. [Concomitant]
     Active Substance: RIFAMPIN
     Dosage: DAILY DOSAGE UNKNOWN
     Route: 048
  9. CUBICIN [Suspect]
     Active Substance: DAPTOMYCIN
     Indication: WOUND INFECTION STAPHYLOCOCCAL
     Dosage: 350 MG, QOD
     Route: 041
     Dates: start: 20160218, end: 20160224

REACTIONS (1)
  - Pneumonia [Recovered/Resolved]

NARRATIVE: CASE EVENT DATE: 20160223
